FAERS Safety Report 6018699-5 (Version None)
Quarter: 2008Q4

REPORT INFORMATION
  Report Type: 
  Country: None (occurrence: None)
  Receive Date: 20081223
  Receipt Date: 20081216
  Transmission Date: 20090506
  Serious: Yes (Death, Hospitalization)
  Sender: FDA-Public Use
  Company Number: NO-MERCK-0812NOR00006

PATIENT
  Sex: Male

DRUGS (22)
  1. ZOCOR [Suspect]
     Indication: HYPERCHOLESTEROLAEMIA
     Route: 048
     Dates: start: 20070917, end: 20071006
  2. METOPROLOL TARTRATE [Concomitant]
     Route: 048
  3. DALTEPARIN SODIUM [Concomitant]
     Route: 058
     Dates: start: 20071001, end: 20071009
  4. ASPIRIN AND MAGNESIUM OXIDE [Concomitant]
     Route: 048
  5. FUROSEMIDE [Concomitant]
     Route: 048
     Dates: end: 20071001
  6. ALLOPURINOL [Concomitant]
     Route: 065
  7. FERROUS SULFATE [Concomitant]
     Route: 048
  8. CALCIUM CARBONATE [Concomitant]
     Route: 047
     Dates: start: 20071001
  9. PREDNISOLONE [Concomitant]
     Route: 048
  10. CYCLOSPORINE [Suspect]
     Indication: RENAL TRANSPLANT
     Route: 065
     Dates: start: 20070927, end: 20070928
  11. METRONIDAZOLE [Concomitant]
     Indication: CLOSTRIDIUM DIFFICILE COLITIS
     Route: 065
     Dates: start: 20070901, end: 20071001
  12. DARBEPOETIN ALFA [Concomitant]
     Route: 065
     Dates: start: 20071001, end: 20071008
  13. HYDROCORTISONE SODIUM SUCCINATE [Concomitant]
     Route: 042
     Dates: end: 20070929
  14. VANCOMYCIN [Concomitant]
     Route: 065
     Dates: start: 20070929, end: 20071008
  15. RAMIPRIL [Concomitant]
     Route: 065
     Dates: end: 20070927
  16. BICARBONATE [Concomitant]
     Indication: METABOLIC ACIDOSIS
     Route: 065
     Dates: start: 20071001
  17. CEFUROXIME SODIUM [Concomitant]
     Route: 065
     Dates: start: 20070901, end: 20070901
  18. FUROSEMIDE [Concomitant]
     Route: 065
     Dates: start: 20071001
  19. FUROSEMIDE [Concomitant]
     Route: 065
     Dates: start: 20071006
  20. ALFACALCIDOL [Concomitant]
     Route: 065
  21. ALFACALCIDOL [Concomitant]
     Route: 065
     Dates: start: 20071008, end: 20071009
  22. FLUVASTATIN SODIUM [Concomitant]
     Indication: HYPERCHOLESTEROLAEMIA
     Route: 065
     Dates: end: 20070919

REACTIONS (4)
  - BLOOD CREATININE INCREASED [None]
  - CARDIAC ARREST [None]
  - HYPERKALAEMIA [None]
  - RENAL FAILURE ACUTE [None]
